FAERS Safety Report 18479586 (Version 1)
Quarter: 2020Q4

REPORT INFORMATION
  Report Type: Spontaneous
  Country: US (occurrence: US)
  Receive Date: 20201106
  Receipt Date: 20201106
  Transmission Date: 20210114
  Serious: Yes (Other)
  Sender: FDA-Public Use
  Company Number: None

PATIENT
  Age: 23 Year
  Sex: Female
  Weight: 58.5 kg

DRUGS (1)
  1. NEOMYCIN AND POLYMYXIN B SULFATES AND HYDROCORTISONE [Suspect]
     Active Substance: HYDROCORTISONE\NEOMYCIN SULFATE\POLYMYXIN B SULFATE
     Indication: OTITIS MEDIA
     Dosage: ?          QUANTITY:1 DROP(S);?
     Route: 001
     Dates: start: 20201106, end: 20201106

REACTIONS (1)
  - Ear discomfort [None]

NARRATIVE: CASE EVENT DATE: 20201106
